FAERS Safety Report 4801119-3 (Version None)
Quarter: 2005Q4

REPORT INFORMATION
  Report Type: 
  Country: None (occurrence: None)
  Receive Date: 20051017
  Receipt Date: 20051010
  Transmission Date: 20060501
  Serious: Yes (Life-Threatening, Hospitalization, Other)
  Sender: FDA-Public Use
  Company Number: 2005AC01608

PATIENT
  Age: 45 Year
  Sex: Female

DRUGS (3)
  1. QUETIAPINE [Suspect]
     Route: 048
  2. ALBUTEROL [Concomitant]
  3. ESCITALOPRAM [Concomitant]

REACTIONS (9)
  - AFFECTIVE DISORDER [None]
  - ASTHMA [None]
  - CONVULSION [None]
  - DRUG DEPENDENCE [None]
  - LIVER FUNCTION TEST ABNORMAL [None]
  - LONG QT SYNDROME [None]
  - SUICIDAL IDEATION [None]
  - TORSADE DE POINTES [None]
  - VENTRICULAR FIBRILLATION [None]
